FAERS Safety Report 16631109 (Version 2)
Quarter: 2019Q3

REPORT INFORMATION
  Report Type: Spontaneous
  Country: US (occurrence: US)
  Receive Date: 20190725
  Receipt Date: 20190827
  Transmission Date: 20191004
  Serious: No
  Sender: FDA-Public Use
  Company Number: US-BAYER-2019-137654

PATIENT
  Age: 66 Year
  Sex: Female
  Weight: 95 kg

DRUGS (4)
  1. MIRALAX [Suspect]
     Active Substance: POLYETHYLENE GLYCOL 3350
     Indication: GASTROINTESTINAL DISORDER
     Dosage: UNK
     Route: 048
     Dates: start: 2017, end: 2017
  2. VITAMINS NOS [Concomitant]
     Active Substance: VITAMINS
  3. VITAMIN C;VITAMIN D NOS;VITAMIN E [Concomitant]
  4. VITAMIN C;VITAMIN D NOS;VITAMIN E [Concomitant]

REACTIONS (1)
  - Expired product administered [Unknown]
